FAERS Safety Report 16952590 (Version 2)
Quarter: 2019Q4

REPORT INFORMATION
  Report Type: Spontaneous
  Country: US (occurrence: US)
  Receive Date: 20191023
  Receipt Date: 20191129
  Transmission Date: 20200122
  Serious: Yes (Hospitalization, Other)
  Sender: FDA-Public Use
  Company Number: US-PFIZER INC-2019455218

PATIENT
  Age: 36 Year
  Sex: Male
  Weight: 92.97 kg

DRUGS (3)
  1. NEURONTIN [Suspect]
     Active Substance: GABAPENTIN
     Indication: MENTAL DISORDER
     Dosage: UNK
  2. EFFEXOR XR [Suspect]
     Active Substance: VENLAFAXINE HYDROCHLORIDE
     Indication: ANXIETY
     Dosage: UNK
  3. EFFEXOR XR [Suspect]
     Active Substance: VENLAFAXINE HYDROCHLORIDE
     Indication: DEPRESSION

REACTIONS (17)
  - Major depression [Unknown]
  - Anxiety [Unknown]
  - Panic attack [Unknown]
  - Drug ineffective [Unknown]
  - Crime [Unknown]
  - Aggression [Unknown]
  - Emotional disorder [Unknown]
  - Depression [Unknown]
  - Amnesia [Unknown]
  - Confusional state [Unknown]
  - Nervousness [Unknown]
  - Suicidal ideation [Unknown]
  - Dizziness [Unknown]
  - Anger [Unknown]
  - Headache [Unknown]
  - Abnormal behaviour [Unknown]
  - Vision blurred [Unknown]

NARRATIVE: CASE EVENT DATE: 2000
